FAERS Safety Report 21664693 (Version 2)
Quarter: 2023Q1

REPORT INFORMATION
  Report Type: Spontaneous
  Country: US (occurrence: US)
  Receive Date: 20221130
  Receipt Date: 20230301
  Transmission Date: 20230418
  Serious: Yes (Other)
  Sender: FDA-Public Use
  Company Number: US-PFIZER INC-PV202200112959

PATIENT
  Age: 55 Year
  Sex: Female

DRUGS (1)
  1. SUTENT [Suspect]
     Active Substance: SUNITINIB MALATE
     Indication: Pancreatic carcinoma
     Dosage: TAKE 1 CAPSULE (12.5MG) DAILY FOR 28 DAYS
     Route: 048

REACTIONS (2)
  - Myelosuppression [Unknown]
  - Off label use [Unknown]
